FAERS Safety Report 16083122 (Version 1)
Quarter: 2019Q1

REPORT INFORMATION
  Report Type: Report from Study
  Country: IT (occurrence: IT)
  Receive Date: 20190318
  Receipt Date: 20190318
  Transmission Date: 20190418
  Serious: Yes (Other)
  Sender: FDA-Public Use
  Company Number: IT-ACCORD-112614

PATIENT
  Age: 53 Year
  Sex: Female

DRUGS (2)
  1. QUETIAPINE. [Suspect]
     Active Substance: QUETIAPINE
     Route: 048
  2. PREGABALIN. [Suspect]
     Active Substance: PREGABALIN
     Route: 048

REACTIONS (5)
  - Sopor [Recovered/Resolved]
  - Intentional overdose [Unknown]
  - Alcohol interaction [Unknown]
  - Intentional self-injury [Unknown]
  - Blood creatine phosphokinase increased [Recovered/Resolved]

NARRATIVE: CASE EVENT DATE: 20181014
